FAERS Safety Report 6955429-4 (Version None)
Quarter: 2010Q3

REPORT INFORMATION
  Report Type: 
  Country: None (occurrence: None)
  Receive Date: 20100830
  Receipt Date: 20100826
  Transmission Date: 20110219
  Serious: Yes (Disabling)
  Sender: FDA-Public Use
  Company Number: US-ROXANE LABORATORIES, INC.-2010-RO-01139RO

PATIENT
  Age: 17 Year
  Sex: Female

DRUGS (2)
  1. DEXAMETHASONE [Suspect]
     Indication: LEUKAEMIA
     Dates: start: 20060101
  2. DECADRON [Suspect]
     Indication: LEUKAEMIA
     Route: 037
     Dates: start: 20060101

REACTIONS (4)
  - ARTHRALGIA [None]
  - ARTHROPATHY [None]
  - GAIT DISTURBANCE [None]
  - JOINT DESTRUCTION [None]
